FAERS Safety Report 7112784-2 (Version None)
Quarter: 2010Q4

REPORT INFORMATION
  Report Type: 
  Country: None (occurrence: None)
  Receive Date: 20101119
  Receipt Date: 20101116
  Transmission Date: 20110411
  Serious: Yes (Other)
  Sender: FDA-Public Use
  Company Number: PHHY2010IT77996

PATIENT
  Age: 66 Year
  Sex: Male

DRUGS (4)
  1. PROLEUKIN [Suspect]
     Dosage: UNK
     Dates: start: 20020101, end: 20060101
  2. SAQUINAVIR [Concomitant]
     Indication: HIV INFECTION
     Dosage: UNK
     Dates: start: 20020101
  3. LAMIVUDINE [Concomitant]
     Indication: HIV INFECTION
     Dosage: UNK
     Dates: start: 20020101
  4. STAVUDINE [Concomitant]
     Indication: HIV INFECTION
     Dosage: UNK
     Dates: start: 20020101

REACTIONS (5)
  - GROIN PAIN [None]
  - INGUINAL MASS [None]
  - LYMPHADENOPATHY [None]
  - MALIGNANT TUMOUR EXCISION [None]
  - NEUROENDOCRINE CARCINOMA OF THE SKIN [None]
